FAERS Safety Report 7705926-9 (Version None)
Quarter: 2011Q3

REPORT INFORMATION
  Report Type: 
  Country: None (occurrence: None)
  Receive Date: 20110824
  Receipt Date: 20110822
  Transmission Date: 20111222
  Serious: Yes (Other)
  Sender: FDA-Public Use
  Company Number: US-PFIZER INC-2011194070

PATIENT
  Sex: Female
  Weight: 62.585 kg

DRUGS (9)
  1. LYRICA [Suspect]
     Indication: NERVE INJURY
  2. TRAZODONE [Concomitant]
     Dosage: UNK
  3. LYRICA [Suspect]
     Indication: FIBROMYALGIA
     Dosage: 150 MG, 4X/DAY
     Route: 048
     Dates: start: 20060601
  4. KEPPRA [Concomitant]
     Dosage: 1500 MG, 2X/DAY
  5. CYMBALTA [Concomitant]
     Dosage: 30MG IN THE MORNING AND 60MG IN THE EVENING
  6. VICODIN [Concomitant]
     Dosage: UNK
  7. NEXIUM [Concomitant]
     Dosage: UNK
  8. HYDROCODONE BITARTRATE AND IBUPROFEN [Concomitant]
     Dosage: UNK
  9. PROVIGIL [Concomitant]
     Dosage: UNK

REACTIONS (3)
  - FOOT FRACTURE [None]
  - MALAISE [None]
  - FALL [None]
